FAERS Safety Report 11351631 (Version 1)
Quarter: 2015Q3

REPORT INFORMATION
  Report Type: Spontaneous
  Country: US (occurrence: US)
  Receive Date: 20150807
  Receipt Date: 20150807
  Transmission Date: 20151125
  Serious: No
  Sender: FDA-Public Use
  Company Number: US-JNJFOC-20150404499

PATIENT
  Age: 35 Year
  Sex: Female
  Weight: 90.72 kg

DRUGS (4)
  1. WOMENS ROGAINE [Suspect]
     Active Substance: MINOXIDIL
     Route: 061
  2. VITAMIN B12 [Concomitant]
     Active Substance: CYANOCOBALAMIN
     Indication: FATIGUE
     Route: 065
  3. WOMENS ROGAINE [Suspect]
     Active Substance: MINOXIDIL
     Indication: HAIR GROWTH ABNORMAL
     Dosage: DROPPER 1ML
     Route: 061
  4. PRENATAL VITAMIN [Concomitant]
     Active Substance: VITAMINS
     Indication: HAIR GROWTH ABNORMAL
     Route: 065

REACTIONS (1)
  - Dandruff [Not Recovered/Not Resolved]
